FAERS Safety Report 15580077 (Version 2)
Quarter: 2018Q4

REPORT INFORMATION
  Report Type: Report from Study
  Country: UY (occurrence: UY)
  Receive Date: 20181102
  Receipt Date: 20181220
  Transmission Date: 20190205
  Serious: Yes (Hospitalization, Other)
  Sender: FDA-Public Use
  Company Number: UY-SA-2018SA281859

PATIENT
  Age: 59 Year
  Sex: Male

DRUGS (5)
  1. INSULIN NPH [INSULIN ISOPHANE BOVINE] [Concomitant]
     Dosage: 30 U BEFORE BREAKFAST, 12 U BEFORE LUNCH. 15 U BEFORE DINNER.
     Route: 065
  2. INSULIN GLARGINE [Suspect]
     Active Substance: INSULIN GLARGINE
     Indication: TYPE 1 DIABETES MELLITUS
     Dosage: 19 IU IN THE MORNING AND 17 IU IN THE EVENG DAILY
     Route: 058
     Dates: start: 20130926, end: 20180919
  3. INSULIN GLULISINE [Suspect]
     Active Substance: INSULIN GLULISINE
     Indication: TYPE 1 DIABETES MELLITUS
     Dosage: 20IU AND 25 IU, QD
     Route: 058
     Dates: start: 2013
  4. RANITIDINE. [Concomitant]
     Active Substance: RANITIDINE
     Dosage: 1 TABLET AT 8 A.M
     Route: 065
  5. INSULIN GLULISINE [Suspect]
     Active Substance: INSULIN GLULISINE
     Dosage: 4 IU BREAKFAST, 5 IU LUNCH, 5 IU AFTERNOON SNACK, 5 IU DINNER
     Route: 058

REACTIONS (9)
  - Loss of consciousness [Recovered/Resolved]
  - Hypoglycaemia [Recovered/Resolved]
  - Hypoglycaemia [Recovered/Resolved]
  - Hypoglycaemic coma [Recovered/Resolved]
  - Glycosylated haemoglobin increased [Unknown]
  - Metabolic disorder [Recovered/Resolved]
  - Medication error [Unknown]
  - Hyperglycaemia [Recovered/Resolved]
  - Treatment noncompliance [Unknown]

NARRATIVE: CASE EVENT DATE: 20181002
